FAERS Safety Report 21448256 (Version 1)
Quarter: 2022Q4

REPORT INFORMATION
  Report Type: Report from Study
  Country: AU (occurrence: AU)
  Receive Date: 20221012
  Receipt Date: 20221012
  Transmission Date: 20230113
  Serious: Yes (Hospitalization, Other)
  Sender: FDA-Public Use
  Company Number: AU-BRISTOL-MYERS SQUIBB COMPANY-BMS-2021-077594

PATIENT
  Age: 71 Year
  Sex: Female

DRUGS (9)
  1. OPDIVO [Suspect]
     Active Substance: NIVOLUMAB
     Indication: Malignant melanoma
     Dosage: 240 MILLIGRAM
     Route: 042
     Dates: start: 20091107
  2. OPDIVO [Suspect]
     Active Substance: NIVOLUMAB
     Route: 042
     Dates: start: 20190509, end: 20200423
  3. LEVETIRACETAM [Concomitant]
     Active Substance: LEVETIRACETAM
     Indication: Seizure
     Route: 042
     Dates: start: 20201229, end: 20210223
  4. LEVETIRACETAM [Concomitant]
     Active Substance: LEVETIRACETAM
     Dosage: BD
     Route: 048
     Dates: start: 20210619, end: 20210702
  5. MIDAZOLAM [Concomitant]
     Active Substance: MIDAZOLAM
     Indication: Seizure
     Dosage: PRN
     Route: 042
     Dates: start: 20201229, end: 20210118
  6. MIDAZOLAM [Concomitant]
     Active Substance: MIDAZOLAM
     Dosage: ONCE
     Route: 042
     Dates: start: 20210701, end: 20210701
  7. DEXAMETHASONE [Concomitant]
     Active Substance: DEXAMETHASONE
     Indication: Seizure
     Route: 042
     Dates: start: 20201229, end: 20201229
  8. PANTOPRAZOLE [Concomitant]
     Active Substance: PANTOPRAZOLE
     Indication: Seizure
     Route: 048
     Dates: start: 20201229, end: 20201229
  9. VALPROATE [Concomitant]
     Active Substance: VALPROIC ACID
     Indication: Seizure
     Dosage: ONCE
     Route: 042
     Dates: start: 20201229, end: 20201229

REACTIONS (8)
  - Generalised tonic-clonic seizure [Recovered/Resolved]
  - Dizziness postural [Recovering/Resolving]
  - Rash [Recovered/Resolved]
  - Tremor [Recovering/Resolving]
  - Skin lesion [Recovering/Resolving]
  - Contusion [Recovered/Resolved]
  - Metastases to central nervous system [Unknown]
  - Haemorrhage intracranial [Unknown]

NARRATIVE: CASE EVENT DATE: 20201229
